FAERS Safety Report 18841824 (Version 15)
Quarter: 2022Q4

REPORT INFORMATION
  Report Type: Report from Study
  Country: AR (occurrence: AR)
  Receive Date: 20210203
  Receipt Date: 20221019
  Transmission Date: 20230113
  Serious: Yes (Death, Life-Threatening, Hospitalization, Other)
  Sender: FDA-Public Use
  Company Number: AR-TAKEDA-AR201930962

PATIENT
  Age: 11 Year
  Sex: Male
  Weight: 27.664 kg

DRUGS (9)
  1. IDURSULFASE [Suspect]
     Active Substance: IDURSULFASE
     Indication: Mucopolysaccharidosis II
     Dosage: 18 MILLIGRAM, 1/WEEK
     Route: 065
     Dates: start: 201311
  2. IDURSULFASE [Suspect]
     Active Substance: IDURSULFASE
     Indication: Enzyme supplementation
     Dosage: 18 MILLIGRAM, 1/WEEK
     Route: 042
     Dates: start: 20131130
  3. IDURSULFASE [Suspect]
     Active Substance: IDURSULFASE
     Dosage: 0.5 MILLIGRAM/KILOGRAM, QD
     Route: 065
     Dates: start: 20131130
  4. IDURSULFASE [Suspect]
     Active Substance: IDURSULFASE
     Dosage: 3 DOSAGE FORM, 1/WEEK
     Route: 042
     Dates: start: 20131130
  5. IDURSULFASE [Suspect]
     Active Substance: IDURSULFASE
     Dosage: 3 DOSAGE FORM, 1/WEEK
     Route: 065
     Dates: start: 20131130
  6. IDURSULFASE [Suspect]
     Active Substance: IDURSULFASE
     Dosage: UNK
     Route: 065
     Dates: start: 20190915
  7. IDURSULFASE [Suspect]
     Active Substance: IDURSULFASE
     Dosage: 18 MILLIGRAM, 1/WEEK
     Route: 042
  8. MORPHINE [Concomitant]
     Active Substance: MORPHINE
     Indication: Palliative care
     Dosage: 3 MILLILITER, Q6HR
     Route: 048
  9. RESCUE [Concomitant]
     Dosage: 1.5 MILLILITER
     Route: 048

REACTIONS (31)
  - Cardio-respiratory arrest [Fatal]
  - Oxygen saturation decreased [Not Recovered/Not Resolved]
  - Hypoxia [Unknown]
  - Seizure [Recovering/Resolving]
  - Bradycardia [Unknown]
  - Tremor [Recovered/Resolved]
  - Cyanosis [Recovered/Resolved]
  - Pneumonia [Not Recovered/Not Resolved]
  - Musculoskeletal stiffness [Recovering/Resolving]
  - Vein disorder [Recovering/Resolving]
  - Generalised oedema [Not Recovered/Not Resolved]
  - Erythema [Recovering/Resolving]
  - Vomiting [Recovered/Resolved]
  - Neck pain [Unknown]
  - Pain [Recovering/Resolving]
  - COVID-19 [Recovered/Resolved]
  - Dyspnoea [Not Recovered/Not Resolved]
  - Cardiac failure [Unknown]
  - Loss of consciousness [Recovering/Resolving]
  - Syncope [Recovering/Resolving]
  - Pyrexia [Recovering/Resolving]
  - Rash macular [Recovering/Resolving]
  - Restlessness [Recovering/Resolving]
  - Productive cough [Recovering/Resolving]
  - Nystagmus [Not Recovered/Not Resolved]
  - Nausea [Recovering/Resolving]
  - Tachypnoea [Recovering/Resolving]
  - Secretion discharge [Recovering/Resolving]
  - Respiratory disorder [Unknown]
  - Crying [Unknown]
  - Therapy interrupted [Unknown]

NARRATIVE: CASE EVENT DATE: 20190917
